FAERS Safety Report 19919955 (Version 2)
Quarter: 2021Q4

REPORT INFORMATION
  Report Type: Spontaneous
  Country: US (occurrence: US)
  Receive Date: 20211005
  Receipt Date: 20211118
  Transmission Date: 20220303
  Serious: No
  Sender: FDA-Public Use
  Company Number: US-BEH-2021136418

PATIENT
  Sex: Male

DRUGS (4)
  1. IDELVION [Suspect]
     Active Substance: COAGULATION FACTOR IX RECOMBINANT HUMAN
     Indication: Factor VIII deficiency
     Dosage: 4350 INTERNATIONAL UNIT, QOW
     Route: 042
     Dates: start: 20210712
  2. IDELVION [Suspect]
     Active Substance: COAGULATION FACTOR IX RECOMBINANT HUMAN
     Indication: Factor VIII deficiency
     Dosage: 4350 INTERNATIONAL UNIT, QOW
     Route: 042
     Dates: start: 20210712
  3. IDELVION [Suspect]
     Active Substance: COAGULATION FACTOR IX RECOMBINANT HUMAN
     Indication: Prophylaxis
     Dosage: 4350 INTERNATIONAL UNIT, PRN
     Route: 042
     Dates: start: 20210712
  4. IDELVION [Suspect]
     Active Substance: COAGULATION FACTOR IX RECOMBINANT HUMAN
     Indication: Prophylaxis
     Dosage: 4350 INTERNATIONAL UNIT, PRN
     Route: 042
     Dates: start: 20210712

REACTIONS (4)
  - Product dispensing issue [Unknown]
  - Treatment noncompliance [Unknown]
  - No adverse event [Unknown]
  - Wrong drug [Unknown]
